FAERS Safety Report 7064642-X (Version None)
Quarter: 2010Q4

REPORT INFORMATION
  Report Type: 
  Country: None (occurrence: None)
  Receive Date: 20101019
  Receipt Date: 20101007
  Transmission Date: 20110411
  Serious: Yes (Life-Threatening, Other)
  Sender: FDA-Public Use
  Company Number: 2010127916

PATIENT
  Age: 88 Year
  Sex: Female

DRUGS (16)
  1. DALTEPARIN SODIUM [Suspect]
     Indication: DEEP VEIN THROMBOSIS
     Dosage: 5000 IU, SUBCUTANEOUS
     Route: 058
     Dates: start: 20100913, end: 20100920
  2. DALTEPARIN SODIUM [Suspect]
     Indication: PROPHYLAXIS
     Dosage: 5000 IU, SUBCUTANEOUS
     Route: 058
     Dates: start: 20100913, end: 20100920
  3. ADCAL-D3 (CALCIUM CARBONATE, COLECALCIFEROL) [Concomitant]
  4. ACETYLSALICYLIC ACID SRT [Concomitant]
  5. AUGMENTIN '125' [Concomitant]
  6. CODEINE PHOSPHATE [Concomitant]
  7. DIPYRIDAMOLE [Concomitant]
  8. FERROUS SULFATE TAB [Concomitant]
  9. GABAPENTIN [Concomitant]
  10. METOPROLOL [Concomitant]
  11. MOVICOL (MARCROGOL, POTASSIUM CHLORIDE, SODIUM BICARBONATE, SODIUM CHL [Concomitant]
  12. NITROFURANTOIN [Concomitant]
  13. OMEPRAZOLE [Concomitant]
  14. PARACETAMOL [Concomitant]
  15. PERINDOPRIL [Concomitant]
  16. SIMVASTATIN [Concomitant]

REACTIONS (5)
  - ACIDOSIS [None]
  - BLOOD POTASSIUM INCREASED [None]
  - ELECTROCARDIOGRAM CHANGE [None]
  - HAEMOLYSIS [None]
  - RENAL FAILURE [None]
